FAERS Safety Report 5893404-1 (Version None)
Quarter: 2008Q3

REPORT INFORMATION
  Report Type: 
  Country: None (occurrence: None)
  Receive Date: 20080922
  Receipt Date: 20080922
  Transmission Date: 20090109
  Serious: No
  Sender: FDA-Public Use
  Company Number: None

PATIENT
  Age: 48 Year
  Sex: Female
  Weight: 51.7101 kg

DRUGS (2)
  1. CYMBALTA [Suspect]
     Indication: DEPRESSION
     Dosage: 20MG 2X DAILY PO
     Route: 048
  2. CYMBALTA [Suspect]
     Indication: FIBROMYALGIA
     Dosage: 20MG 2X DAILY PO
     Route: 048

REACTIONS (2)
  - DIPLOPIA [None]
  - DIZZINESS [None]
